FAERS Safety Report 18252601 (Version 5)
Quarter: 2021Q2

REPORT INFORMATION
  Report Type: Report from Study
  Country: JP (occurrence: JP)
  Receive Date: 20200910
  Receipt Date: 20210520
  Transmission Date: 20210717
  Serious: Yes (Hospitalization, Other)
  Sender: FDA-Public Use
  Company Number: JP-TEVA-2020-JP-1827738

PATIENT
  Age: 51 Year
  Sex: Female
  Weight: 61.2 kg

DRUGS (11)
  1. TEARBALANCE [Concomitant]
     Active Substance: HYALURONATE SODIUM
  2. GLATIRAMER ACETATE INJECTION [Suspect]
     Active Substance: GLATIRAMER ACETATE
     Indication: RELAPSING-REMITTING MULTIPLE SCLEROSIS
     Dosage: 20 MILLIGRAM/MILLILITERS DAILY;
     Route: 058
     Dates: start: 20200324, end: 20200903
  3. LIORESAL [Concomitant]
     Active Substance: BACLOFEN
     Dates: start: 20200527
  4. TIMOLOL. [Concomitant]
     Active Substance: TIMOLOL
  5. ALESION [Concomitant]
     Active Substance: EPINASTINE HYDROCHLORIDE
  6. MECOBALAMIN [Concomitant]
     Active Substance: METHYLCOBALAMIN
     Dates: end: 20200331
  7. MAGMITT [Concomitant]
     Active Substance: MAGNESIUM OXIDE
     Dates: end: 20200331
  8. URSODEOXYCHOLIC ACID [Concomitant]
     Active Substance: URSODIOL
     Dates: end: 20200728
  9. FEXOFENADINE HYDROCHLORIDE. [Concomitant]
     Active Substance: FEXOFENADINE HYDROCHLORIDE
     Dates: end: 20200415
  10. CALONAL [Concomitant]
     Active Substance: ACETAMINOPHEN
  11. SENNOSIDE A+B [Concomitant]
     Active Substance: SENNOSIDES A AND B

REACTIONS (5)
  - Injection site pruritus [Recovered/Resolved]
  - Anaphylactic shock [Recovered/Resolved]
  - Injection site erythema [Recovered/Resolved]
  - Injection site erythema [Recovered/Resolved]
  - Injection site pruritus [Recovered/Resolved]

NARRATIVE: CASE EVENT DATE: 20200401
